FAERS Safety Report 23271797 (Version 1)
Quarter: 2023Q4

REPORT INFORMATION
  Report Type: Spontaneous
  Country: CN (occurrence: CN)
  Receive Date: 20231207
  Receipt Date: 20231207
  Transmission Date: 20240109
  Serious: Yes (Other)
  Sender: FDA-Public Use
  Company Number: CN-PFIZER INC-PV202300196160

PATIENT
  Age: 28 Year
  Sex: Female
  Weight: 82 kg

DRUGS (2)
  1. CARBOPROST TROMETHAMINE [Suspect]
     Active Substance: CARBOPROST TROMETHAMINE
     Indication: Uterine hypotonus
     Dosage: 250 UG, 2X/DAY
     Route: 030
     Dates: start: 20231108, end: 20231108
  2. CARBOPROST TROMETHAMINE [Suspect]
     Active Substance: CARBOPROST TROMETHAMINE
     Indication: Surgery

REACTIONS (1)
  - Anal incontinence [Recovered/Resolved]

NARRATIVE: CASE EVENT DATE: 20231108
